FAERS Safety Report 8030425-7 (Version None)
Quarter: 2012Q1

REPORT INFORMATION
  Report Type: 
  Country: None (occurrence: None)
  Receive Date: 20120109
  Receipt Date: 20120109
  Transmission Date: 20120608
  Serious: No
  Sender: FDA-Public Use
  Company Number: None

PATIENT
  Age: 21 Year
  Sex: Male
  Weight: 92.986 kg

DRUGS (1)
  1. PROPECIA [Suspect]
     Indication: ALOPECIA
     Dosage: 1MG
     Route: 048
     Dates: start: 20060901, end: 20061116

REACTIONS (7)
  - EJACULATION FAILURE [None]
  - SEMEN VISCOSITY DECREASED [None]
  - PENIS DISORDER [None]
  - GENITAL HYPOAESTHESIA [None]
  - ORGASMIC SENSATION DECREASED [None]
  - LIBIDO DECREASED [None]
  - ERECTILE DYSFUNCTION [None]
